FAERS Safety Report 9478980 (Version 1)
Quarter: 2013Q3

REPORT INFORMATION
  Report Type: Spontaneous
  Country: PL (occurrence: PL)
  Receive Date: 20130827
  Receipt Date: 20130827
  Transmission Date: 20140515
  Serious: Yes (Life-Threatening)
  Sender: FDA-Public Use
  Company Number: PL-TEVA-427939ISR

PATIENT
  Age: 9 Year
  Sex: Female
  Weight: 37 kg

DRUGS (2)
  1. SALAMOL [Suspect]
     Indication: PNEUMONIA BACTERIAL
     Dosage: 2.5 MILLIGRAM DAILY;
     Route: 055
     Dates: start: 20130309, end: 20130309
  2. SALAMOL [Suspect]
     Indication: ASTHMA

REACTIONS (9)
  - Dizziness [Recovered/Resolved]
  - Palpitations [Recovered/Resolved]
  - Nausea [Recovered/Resolved]
  - Tremor [Recovered/Resolved]
  - Hypokalaemia [Recovered/Resolved]
  - Metabolic acidosis [Recovered/Resolved]
  - Tachycardia [Recovered/Resolved]
  - Blood pressure increased [Recovered/Resolved]
  - Off label use [Unknown]
